FAERS Safety Report 19040766 (Version 4)
Quarter: 2021Q2

REPORT INFORMATION
  Report Type: Spontaneous
  Country: GB (occurrence: GB)
  Receive Date: 20210323
  Receipt Date: 20210621
  Transmission Date: 20210717
  Serious: Yes (Other)
  Sender: FDA-Public Use
  Company Number: GB-NOVOPROD-795004

PATIENT
  Age: 83 Year
  Sex: Female

DRUGS (1)
  1. VAGIFEM [Suspect]
     Active Substance: ESTRADIOL
     Indication: ATROPHIC VULVOVAGINITIS
     Dosage: UNK
     Route: 067
     Dates: start: 202011

REACTIONS (7)
  - Nasal polyps [Unknown]
  - Vulvovaginal discomfort [Recovering/Resolving]
  - Insomnia [Recovering/Resolving]
  - Vulvovaginal pain [Recovering/Resolving]
  - Breast cancer [Recovered/Resolved]
  - Suicidal ideation [Unknown]
  - Vulvovaginal burning sensation [Unknown]

NARRATIVE: CASE EVENT DATE: 20201122
